FAERS Safety Report 9542998 (Version 1)
Quarter: 2013Q2

REPORT INFORMATION
  Report Type: Spontaneous
  Country: US (occurrence: None)
  Receive Date: 20130524
  Receipt Date: 20130524
  Transmission Date: 20140414
  Serious: Yes (Other)
  Sender: FDA-Public Use
  Company Number: PHEH2012US025234

PATIENT
  Age: 51 Year
  Sex: Female

DRUGS (6)
  1. GILENYA (FINGOLIMOD) CAPSULE, 0.5MG [Suspect]
     Indication: MULTIPLE SCLEROSIS
     Route: 048
  2. MACRODANTIN [Concomitant]
  3. NEURONTIN (GABAPENTIN) [Concomitant]
  4. AMPYRA (FAMPRIDINE [Concomitant]
  5. DETROL (TOLTERODINE L-TARTRATE) [Concomitant]
  6. ALLERGY (CHLORPHENAMINE) [Concomitant]

REACTIONS (2)
  - Reflexes abnormal [None]
  - Heart rate decreased [None]
